FAERS Safety Report 5648810-7 (Version None)
Quarter: 2008Q1

REPORT INFORMATION
  Report Type: 
  Country: None (occurrence: None)
  Receive Date: 20080131
  Receipt Date: 20071123
  Transmission Date: 20080703
  Serious: No
  Sender: FDA-Public Use
  Company Number: US200706001829

PATIENT
  Age: 57 Year
  Sex: Female
  Weight: 97.5 kg

DRUGS (7)
  1. BYETTA [Suspect]
     Indication: TYPE 2 DIABETES MELLITUS
     Dosage: 5 UG, 2/D, SUBCUTANEOUS ; 10 UG, 2/D, SUBCUTANEOUS
     Route: 058
     Dates: start: 20061201, end: 20070101
  2. BYETTA [Suspect]
     Indication: TYPE 2 DIABETES MELLITUS
     Dosage: 5 UG, 2/D, SUBCUTANEOUS ; 10 UG, 2/D, SUBCUTANEOUS
     Route: 058
     Dates: start: 20070101, end: 20070201
  3. BYETTA [Suspect]
     Indication: TYPE 2 DIABETES MELLITUS
     Dosage: 5 UG, 2/D, SUBCUTANEOUS ; 10 UG, 2/D, SUBCUTANEOUS
     Route: 058
     Dates: start: 20070201
  4. BYETTA [Suspect]
  5. METFORMIN HCL [Concomitant]
  6. GLIPIZIDE XL (GLIPIZIDE) [Concomitant]
  7. LIPOIC ACID (THIOCTIC ACID) [Concomitant]

REACTIONS (7)
  - DECREASED APPETITE [None]
  - DISTURBANCE IN ATTENTION [None]
  - DYSKINESIA [None]
  - INCORRECT DOSE ADMINISTERED [None]
  - NERVOUSNESS [None]
  - VITREOUS FLOATERS [None]
  - WEIGHT DECREASED [None]
